FAERS Safety Report 17228126 (Version 2)
Quarter: 2020Q1

REPORT INFORMATION
  Report Type: Spontaneous
  Country: NL (occurrence: NL)
  Receive Date: 20200103
  Receipt Date: 20200106
  Transmission Date: 20200409
  Serious: Yes (Disabling)
  Sender: FDA-Public Use
  Company Number: NL-TEVA-2019-NL-1160514

PATIENT
  Age: 90 Year
  Sex: Female
  Weight: 63 kg

DRUGS (6)
  1. ALENDRON/CHOLECALCIFEROL 70/500IE 1X PER WEEK 1 TABLET [Concomitant]
     Dosage: 70 MILLIGRAM, 70/500IE, 1W1
  2. OMEPRAZOL 20MG [Concomitant]
     Dosage: 100 MILLIGRAM, 1DD1
  3. PREDNISOLON TABLET, 5 MG (MILLIGRAM) [Suspect]
     Active Substance: PREDNISOLONE
     Indication: RHEUMATOID ARTHRITIS
     Dosage: 15 MG; 1DD3
     Dates: start: 20190524
  4. LOSARTAN 100MG [Concomitant]
     Active Substance: LOSARTAN
     Dosage: 100 MILLIGRAM, 1DD1
  5. PARACETAMOL 500MG [Concomitant]
     Active Substance: ACETAMINOPHEN
     Dosage: 1000 MILLIGRAM, 4DD2
  6. ALENDRON/CHOLECALCIFEROL 70/500IE 1X PER WEEK 1 TABLET [Concomitant]
     Dosage: 500 IU (INTERNATIONAL UNIT), 1W1

REACTIONS (1)
  - Tendon rupture [Recovering/Resolving]

NARRATIVE: CASE EVENT DATE: 20191101
